FAERS Safety Report 9693246 (Version 1)
Quarter: 2013Q4

REPORT INFORMATION
  Report Type: Spontaneous
  Country: US (occurrence: None)
  Receive Date: 20131115
  Receipt Date: 20131115
  Transmission Date: 20140711
  Serious: No
  Sender: FDA-Public Use
  Company Number: None

PATIENT
  Age: 71 None
  Sex: Female

DRUGS (6)
  1. AUGMENTIN [Suspect]
     Indication: INFECTION
     Dates: start: 20120615, end: 20120622
  2. ASPIRIN [Concomitant]
     Dates: start: 20120615, end: 20120615
  3. VITAMIN B 12 [Concomitant]
  4. ZOFRAN [Concomitant]
  5. CITRACAL-D [Concomitant]
  6. OMEGA-3 [Concomitant]

REACTIONS (2)
  - Drug-induced liver injury [None]
  - Hepatic cyst [None]
